FAERS Safety Report 5280800-9 (Version None)
Quarter: 2007Q1

REPORT INFORMATION
  Report Type: 
  Country: None (occurrence: None)
  Receive Date: 20070329
  Receipt Date: 20070316
  Transmission Date: 20070707
  Serious: Yes (Hospitalization)
  Sender: FDA-Public Use
  Company Number: US-ELI_LILLY_AND_COMPANY-US200703003466

PATIENT
  Age: 7 Year
  Sex: Male

DRUGS (4)
  1. STRATTERA [Suspect]
     Indication: ATTENTION DEFICIT/HYPERACTIVITY DISORDER
     Dosage: 2 MG/KG, UNK
     Dates: end: 20070316
  2. ZOLOFT [Concomitant]
  3. RISPERDAL [Concomitant]
  4. MELATONIN [Concomitant]
     Indication: SLEEP DISORDER

REACTIONS (5)
  - AGGRESSION [None]
  - CONVULSION [None]
  - PYROMANIA [None]
  - SNORING [None]
  - SOMNOLENCE [None]
